FAERS Safety Report 6070286-9 (Version None)
Quarter: 2009Q1

REPORT INFORMATION
  Report Type: 
  Country: None (occurrence: None)
  Receive Date: 20090203
  Receipt Date: 20090114
  Transmission Date: 20090719
  Serious: Yes (Life-Threatening, Hospitalization)
  Sender: FDA-Public Use
  Company Number: 2009S1000699

PATIENT
  Age: 7 Year
  Sex: Male

DRUGS (9)
  1. THIOPENTAL SODIUM [Suspect]
     Indication: INDUCTION OF ANAESTHESIA
  2. FENTANYL-100 [Suspect]
     Indication: INDUCTION OF ANAESTHESIA
  3. VECURONIUM BROMIDE [Suspect]
     Indication: INDUCTION OF ANAESTHESIA
  4. NITROUS OXIDE W/ OXYGEN [Suspect]
     Indication: ANAESTHESIA
  5. ISOFLURANE [Suspect]
     Indication: ANAESTHESIA
  6. CYCLOPHOSPHAMIDE (PREV.) [Concomitant]
  7. ETOPOSIDE (PREV.) [Concomitant]
  8. DOXORUBICIN (PREV.) [Concomitant]
  9. RADIOTHERAPY (PREV.) [Concomitant]

REACTIONS (12)
  - ANAESTHETIC COMPLICATION [None]
  - CARDIAC ARREST [None]
  - DRUG RESISTANCE [None]
  - ELECTROCARDIOGRAM ST-T CHANGE [None]
  - METABOLIC ACIDOSIS [None]
  - PERITONEAL DIALYSIS [None]
  - REFUSAL OF TREATMENT BY RELATIVE [None]
  - RENAL IMPAIRMENT [None]
  - SUPRAVENTRICULAR EXTRASYSTOLES [None]
  - TUMOUR LYSIS SYNDROME [None]
  - VENTRICULAR FIBRILLATION [None]
  - VENTRICULAR TACHYCARDIA [None]
